FAERS Safety Report 10736758 (Version 1)
Quarter: 2015Q1

REPORT INFORMATION
  Report Type: Spontaneous
  Country: IN (occurrence: None)
  Receive Date: 20150122
  Receipt Date: 20150122
  Transmission Date: 20150721
  Serious: Yes (Other)
  Sender: FDA-Public Use
  Company Number: 2015AJA00002

PATIENT
  Age: 25 Year
  Sex: Male

DRUGS (4)
  1. UNSPECIFIED IV FLUIDS [Concomitant]
  2. AMISULPRIDE [Suspect]
     Active Substance: AMISULPRIDE
     Indication: PSYCHIATRIC SYMPTOM
     Route: 048
  3. LORAZEPAM. [Concomitant]
     Active Substance: LORAZEPAM
  4. RISPERIDONE. [Suspect]
     Active Substance: RISPERIDONE
     Indication: PSYCHIATRIC SYMPTOM
     Route: 048

REACTIONS (3)
  - Joint dislocation [None]
  - Trismus [None]
  - Oromandibular dystonia [None]

NARRATIVE: CASE EVENT DATE: 201412
